FAERS Safety Report 24728727 (Version 1)
Quarter: 2024Q4

REPORT INFORMATION
  Report Type: Spontaneous
  Country: TW (occurrence: TW)
  Receive Date: 20241212
  Receipt Date: 20241212
  Transmission Date: 20250114
  Serious: Yes (Hospitalization, Other)
  Sender: PHARMACEUTICAL ASSOC
  Company Number: TW-PAIPHARMA-2024-TW-000035

PATIENT
  Age: 67 Year
  Sex: Male

DRUGS (4)
  1. RISPERIDONE [Suspect]
     Active Substance: RISPERIDONE
     Indication: Agitation
     Dosage: 2 MG DAILY
  2. PAROXETINE [Suspect]
     Active Substance: PAROXETINE
     Indication: Depressed mood
     Dosage: 20 MG DAILY
  3. QUETIAPINE [Suspect]
     Active Substance: QUETIAPINE
     Indication: Agitation
     Dosage: 25 MG TWICE DAILY AND 25 MG ONCE BEFORE BED
  4. NALTREXONE [Concomitant]
     Active Substance: NALTREXONE
     Dosage: 50 MG DAILY

REACTIONS (1)
  - Serotonin syndrome [Recovered/Resolved]
